FAERS Safety Report 21646816 (Version 2)
Quarter: 2023Q1

REPORT INFORMATION
  Report Type: Spontaneous
  Country: JP (occurrence: JP)
  Receive Date: 20221127
  Receipt Date: 20230102
  Transmission Date: 20230417
  Serious: Yes (Hospitalization, Other)
  Sender: FDA-Public Use
  Company Number: JP-TEVA-2022-JP-2828260

PATIENT
  Age: 52 Year
  Sex: Male

DRUGS (6)
  1. IRINOTECAN [Suspect]
     Active Substance: IRINOTECAN
     Indication: Rectal cancer stage III
     Dosage: EVERY FOUR WEEKS; AS SECOND LINE TREATMENT
     Route: 065
  2. IRINOTECAN [Suspect]
     Active Substance: IRINOTECAN
     Indication: Anal cancer
  3. BEVACIZUMAB [Suspect]
     Active Substance: BEVACIZUMAB
     Indication: Rectal cancer stage III
     Dosage: 5 MG/KG DAILY; ON DAY 1 AND DAY 15; EVERY 4 WEEKS; AS SECOND LINE TREATMENT
     Route: 041
  4. BEVACIZUMAB [Suspect]
     Active Substance: BEVACIZUMAB
     Indication: Anal cancer
  5. TS-1 [Suspect]
     Active Substance: GIMERACIL\OTERACIL\TEGAFUR
     Indication: Rectal cancer stage III
     Dosage: 120 MILLIGRAM DAILY; ON DAY 2, EVERY FOUR WEEKS; AS SECOND LINE TREATMENT
     Route: 065
  6. TS-1 [Suspect]
     Active Substance: GIMERACIL\OTERACIL\TEGAFUR
     Indication: Anal cancer

REACTIONS (4)
  - Fournier^s gangrene [Recovering/Resolving]
  - Blood pressure decreased [Recovering/Resolving]
  - Septic shock [Recovering/Resolving]
  - Drug ineffective [Unknown]
